FAERS Safety Report 7994184-6 (Version None)
Quarter: 2011Q4

REPORT INFORMATION
  Report Type: 
  Country: None (occurrence: None)
  Receive Date: 20111220
  Receipt Date: 20111024
  Transmission Date: 20120403
  Serious: Yes (Hospitalization, Other)
  Sender: FDA-Public Use
  Company Number: US-NAPPMUNDI-USA-2007-0030458

PATIENT
  Sex: Female

DRUGS (1)
  1. OXYCONTIN [Suspect]
     Indication: PAIN
     Dosage: 80 MG, UNK
     Route: 048
     Dates: start: 20000313, end: 20100129

REACTIONS (20)
  - SKIN BURNING SENSATION [None]
  - CONSTIPATION [None]
  - DRUG WITHDRAWAL SYNDROME [None]
  - TREMOR [None]
  - DRUG DEPENDENCE [None]
  - PAIN [None]
  - HYPERHIDROSIS [None]
  - MEMORY IMPAIRMENT [None]
  - AGEUSIA [None]
  - DEPRESSION [None]
  - ALOPECIA [None]
  - PARANOIA [None]
  - ANXIETY [None]
  - DELUSIONAL DISORDER, UNSPECIFIED TYPE [None]
  - OBSESSIVE-COMPULSIVE DISORDER [None]
  - DISTURBANCE IN ATTENTION [None]
  - GASTRITIS [None]
  - INSOMNIA [None]
  - NAUSEA [None]
  - UNEVALUABLE EVENT [None]
